FAERS Safety Report 9120566 (Version 6)
Quarter: 2016Q1

REPORT INFORMATION
  Report Type: Spontaneous
  Country: US (occurrence: US)
  Receive Date: 20130226
  Receipt Date: 20160121
  Transmission Date: 20160526
  Serious: Yes (Hospitalization, Other)
  Sender: FDA-Public Use
  Company Number: US-009507513-1302USA012144

PATIENT
  Sex: Female
  Weight: 87.53 kg

DRUGS (2)
  1. FOSAMAX [Suspect]
     Active Substance: ALENDRONATE SODIUM
     Indication: OSTEOPOROSIS
     Dosage: 70 MG, QW
     Route: 048
     Dates: end: 20120228
  2. ALENDRONATE SODIUM. [Suspect]
     Active Substance: ALENDRONATE SODIUM
     Indication: OSTEOPOROSIS
     Dosage: 70 MG, UNK
     Route: 048
     Dates: start: 20080327, end: 201202

REACTIONS (17)
  - Hypertension [Unknown]
  - Oophorectomy [Unknown]
  - Gravitational oedema [Unknown]
  - Radiculopathy [Unknown]
  - Osteopenia [Unknown]
  - Cough [Unknown]
  - Hypertension [Unknown]
  - Bronchial hyperreactivity [Unknown]
  - Essential tremor [Unknown]
  - Hypertension [Unknown]
  - Femur fracture [Unknown]
  - Thalassaemia [Unknown]
  - Limb operation [Unknown]
  - Bronchitis [Unknown]
  - Low turnover osteopathy [Unknown]
  - Blood cholesterol increased [Unknown]
  - Arthralgia [Unknown]

NARRATIVE: CASE EVENT DATE: 2006
